FAERS Safety Report 16040012 (Version 2)
Quarter: 2019Q2

REPORT INFORMATION
  Report Type: Report from Study
  Country: US (occurrence: US)
  Receive Date: 20190306
  Receipt Date: 20190419
  Transmission Date: 20190711
  Serious: Yes (Hospitalization)
  Sender: FDA-Public Use
  Company Number: US-BAUSCH-BL-2019-001412

PATIENT
  Age: 68 Year
  Sex: Female

DRUGS (2)
  1. XIFAXAN [Suspect]
     Active Substance: RIFAXIMIN
     Indication: HEPATIC ENCEPHALOPATHY
     Route: 048
     Dates: start: 2014, end: 201902
  2. XIFAXAN [Suspect]
     Active Substance: RIFAXIMIN
     Route: 048
     Dates: start: 201902

REACTIONS (4)
  - Nasopharyngitis [Unknown]
  - Influenza [Recovering/Resolving]
  - Intentional product use issue [Unknown]
  - Product supply issue [Unknown]

NARRATIVE: CASE EVENT DATE: 201902
